FAERS Safety Report 14211450 (Version 4)
Quarter: 2018Q1

REPORT INFORMATION
  Report Type: Spontaneous
  Country: JP (occurrence: JP)
  Receive Date: 20171121
  Receipt Date: 20180220
  Transmission Date: 20180508
  Serious: Yes (Death, Hospitalization)
  Sender: FDA-Public Use
  Company Number: PHHY2017JP170593

PATIENT
  Age: 11 Year
  Sex: Female
  Weight: 34 kg

DRUGS (2)
  1. CICLOSPORIN [Suspect]
     Active Substance: CYCLOSPORINE
     Indication: APLASTIC ANAEMIA
     Dosage: UNK
     Route: 065
     Dates: end: 2014
  2. CYCLOPHOSPHAMIDE. [Suspect]
     Active Substance: CYCLOPHOSPHAMIDE
     Indication: APLASTIC ANAEMIA
     Dosage: UNK
     Route: 065
     Dates: end: 2014

REACTIONS (15)
  - Tachypnoea [Fatal]
  - Brain natriuretic peptide increased [Fatal]
  - Pulmonary oedema [Fatal]
  - Ventricular hypokinesia [Fatal]
  - Pleural effusion [Fatal]
  - Hypoxia [Fatal]
  - Bradycardia [Fatal]
  - Hypotension [Fatal]
  - Lung infiltration [Fatal]
  - Tachycardia [Fatal]
  - Blood lactic acid increased [Fatal]
  - Ejection fraction decreased [Fatal]
  - Product use in unapproved indication [Unknown]
  - Myocarditis [Fatal]
  - Cardiopulmonary failure [Fatal]
